FAERS Safety Report 22606476 (Version 1)
Quarter: 2023Q2

REPORT INFORMATION
  Report Type: Spontaneous
  Country: US (occurrence: None)
  Receive Date: 20230614
  Receipt Date: 20230614
  Transmission Date: 20230722
  Serious: No
  Sender: FDA-Public Use
  Company Number: None

PATIENT
  Age: 71 Year
  Sex: Male
  Weight: 109.32 kg

DRUGS (1)
  1. TREMFYA [Suspect]
     Active Substance: GUSELKUMAB
     Indication: Polyarthritis
     Dosage: INJECT 100MG SUBCUTANEOUSLY  AT WEEK 0 AND WEEKS 4 AS DIRECTED   ?
     Route: 058
     Dates: start: 202103

REACTIONS (1)
  - Coronary artery bypass [None]
